FAERS Safety Report 5957004-7 (Version None)
Quarter: 2008Q4

REPORT INFORMATION
  Report Type: 
  Country: None (occurrence: None)
  Receive Date: 20081118
  Receipt Date: 20080820
  Transmission Date: 20090506
  Serious: No
  Sender: FDA-Public Use
  Company Number: A0743525A

PATIENT
  Age: 76 Year
  Sex: Male

DRUGS (5)
  1. COREG CR [Suspect]
     Indication: HYPERTENSION
     Dosage: 20MG PER DAY
     Route: 048
     Dates: start: 20080201
  2. MICARDIS [Concomitant]
  3. ANDROGEL [Concomitant]
  4. ZOCOR [Concomitant]
  5. AMBIEN [Concomitant]

REACTIONS (2)
  - HYPERTENSION [None]
  - INSOMNIA [None]
